FAERS Safety Report 20612078 (Version 1)
Quarter: 2022Q1

REPORT INFORMATION
  Report Type: Spontaneous
  Country: US (occurrence: US)
  Receive Date: 20220318
  Receipt Date: 20220318
  Transmission Date: 20220423
  Serious: No
  Sender: FDA-Public Use
  Company Number: US-ABBVIE-22K-163-4249818-00

PATIENT
  Age: 32 Year
  Sex: Female
  Weight: 77.180 kg

DRUGS (14)
  1. RINVOQ [Suspect]
     Active Substance: UPADACITINIB
     Indication: Still^s disease
     Route: 048
     Dates: start: 202002, end: 202104
  2. RINVOQ [Suspect]
     Active Substance: UPADACITINIB
     Indication: Juvenile idiopathic arthritis
     Route: 048
     Dates: start: 202104, end: 202105
  3. RINVOQ [Suspect]
     Active Substance: UPADACITINIB
     Route: 048
     Dates: start: 202105, end: 202108
  4. RINVOQ [Suspect]
     Active Substance: UPADACITINIB
     Route: 048
     Dates: start: 2021
  5. METFORMIN [Suspect]
     Active Substance: METFORMIN HYDROCHLORIDE
     Indication: Polycystic ovaries
     Route: 048
     Dates: start: 20220111, end: 20220122
  6. MODERNA COVID-19 VACCINE [Concomitant]
     Active Substance: ELASOMERAN
     Indication: COVID-19 immunisation
     Route: 030
     Dates: start: 20210412, end: 20210412
  7. MODERNA COVID-19 VACCINE [Concomitant]
     Active Substance: ELASOMERAN
     Route: 030
     Dates: start: 20210515, end: 20210515
  8. MODERNA COVID-19 VACCINE [Concomitant]
     Active Substance: ELASOMERAN
     Route: 030
     Dates: start: 20210818, end: 20210818
  9. XOLAIR [Concomitant]
     Active Substance: OMALIZUMAB
     Indication: Urticaria
  10. HYDROCODONE [Concomitant]
     Active Substance: HYDROCODONE
     Indication: Arthralgia
  11. SPIRONOLACTONE [Concomitant]
     Active Substance: SPIRONOLACTONE
     Indication: Polycystic ovaries
  12. PHENERGAN [Concomitant]
     Active Substance: PROMETHAZINE HYDROCHLORIDE
     Indication: Nausea
  13. PHENERGAN [Concomitant]
     Active Substance: PROMETHAZINE HYDROCHLORIDE
     Indication: Vomiting
  14. DICYCLOMINE [Concomitant]
     Active Substance: DICYCLOMINE HYDROCHLORIDE
     Indication: Abdominal pain

REACTIONS (10)
  - Iritis [Not Recovered/Not Resolved]
  - Myocarditis [Recovered/Resolved]
  - Orthostatic hypotension [Recovering/Resolving]
  - Decreased appetite [Not Recovered/Not Resolved]
  - Muscle hernia [Not Recovered/Not Resolved]
  - COVID-19 [Unknown]
  - Still^s disease [Unknown]
  - Off label use [Not Recovered/Not Resolved]
  - Lymphocyte count decreased [Unknown]
  - Therapeutic product effect decreased [Not Recovered/Not Resolved]

NARRATIVE: CASE EVENT DATE: 20200201
